FAERS Safety Report 5110441-5 (Version None)
Quarter: 2006Q3

REPORT INFORMATION
  Report Type: 
  Country: None (occurrence: None)
  Receive Date: 20060921
  Receipt Date: 20060911
  Transmission Date: 20061208
  Serious: Yes (Disabling)
  Sender: FDA-Public Use
  Company Number: PHNR2006AU01197

PATIENT
  Age: 64 Year
  Sex: Male

DRUGS (3)
  1. LUCRIN [Concomitant]
  2. COSUDEX [Concomitant]
  3. ZOMETA [Suspect]
     Indication: PROSTATE CANCER
     Dosage: 4 MG, QMO
     Dates: start: 20051012, end: 20060103

REACTIONS (8)
  - BONE DISORDER [None]
  - DYSAESTHESIA [None]
  - HYPOAESTHESIA ORAL [None]
  - IMPAIRED HEALING [None]
  - OEDEMA MUCOSAL [None]
  - OSTEONECROSIS [None]
  - PAIN IN JAW [None]
  - SOFT TISSUE INFECTION [None]
